FAERS Safety Report 6192492-5 (Version None)
Quarter: 2009Q2

REPORT INFORMATION
  Report Type: 
  Country: None (occurrence: None)
  Receive Date: 20090513
  Receipt Date: 20090507
  Transmission Date: 20091009
  Serious: Yes (Hospitalization)
  Sender: FDA-Public Use
  Company Number: TCI2009A00524

PATIENT
  Age: 67 Year
  Sex: Female

DRUGS (6)
  1. TAKEPRON [Suspect]
     Indication: GASTRIC ULCER
     Dosage: 15 MG (15 MG,1 IN 1 D) PER ORAL
     Route: 048
     Dates: start: 20080101
  2. LASIX [Concomitant]
  3. FOIPAN (CAMOSTAT MESILATE) [Concomitant]
  4. ALLOPURINOL [Concomitant]
  5. THEO-DUR [Concomitant]
  6. SINGULAIR [Concomitant]

REACTIONS (4)
  - COLITIS COLLAGENOUS [None]
  - HAEMOGLOBIN DECREASED [None]
  - LARGE INTESTINAL ULCER [None]
  - ULCER HAEMORRHAGE [None]
